FAERS Safety Report 6388274-1 (Version None)
Quarter: 2009Q4

REPORT INFORMATION
  Report Type: 
  Country: None (occurrence: None)
  Receive Date: 20091005
  Receipt Date: 20090924
  Transmission Date: 20100525
  Serious: Yes (Other)
  Sender: FDA-Public Use
  Company Number: US-PFIZER INC-2009274328

PATIENT
  Sex: Female
  Weight: 58.957 kg

DRUGS (2)
  1. BEXTRA [Suspect]
     Indication: RHEUMATOID ARTHRITIS
  2. LOPRESSOR [Concomitant]
     Indication: HEART RATE INCREASED

REACTIONS (3)
  - CATHETERISATION CARDIAC [None]
  - MYOCARDIAL INFARCTION [None]
  - ULCER HAEMORRHAGE [None]
